FAERS Safety Report 12177500 (Version 2)
Quarter: 2016Q1

REPORT INFORMATION
  Report Type: Spontaneous
  Country: US (occurrence: US)
  Receive Date: 20160314
  Receipt Date: 20160321
  Transmission Date: 20160526
  Serious: Yes (Other)
  Sender: FDA-Public Use
  Company Number: US-TEVA-642198USA

PATIENT
  Age: 57 Year
  Sex: Female

DRUGS (3)
  1. ZECUITY [Suspect]
     Active Substance: SUMATRIPTAN SUCCINATE
     Dosage: 6.5 MG / 4 HOURS
     Route: 062
     Dates: start: 201602, end: 201602
  2. ZECUITY [Suspect]
     Active Substance: SUMATRIPTAN SUCCINATE
     Indication: HEADACHE
     Dosage: 6.5 MG / 4 HOURS
     Route: 062
     Dates: start: 201512, end: 201512
  3. ZECUITY [Suspect]
     Active Substance: SUMATRIPTAN SUCCINATE
     Dosage: 6.5 MG / 4 HOURS
     Route: 062
     Dates: start: 201601, end: 201601

REACTIONS (8)
  - Product adhesion issue [Unknown]
  - Device leakage [Unknown]
  - Application site burn [Recovering/Resolving]
  - Application site pain [Unknown]
  - Application site erythema [Recovering/Resolving]
  - Application site urticaria [Recovering/Resolving]
  - Application site paraesthesia [Unknown]
  - Application site swelling [Unknown]

NARRATIVE: CASE EVENT DATE: 201512
